FAERS Safety Report 8094453-8 (Version None)
Quarter: 2012Q1

REPORT INFORMATION
  Report Type: 
  Country: None (occurrence: None)
  Receive Date: 20120130
  Receipt Date: 20120117
  Transmission Date: 20120608
  Serious: Yes (Hospitalization)
  Sender: FDA-Public Use
  Company Number: US-US-EMD SERONO, INC.-7107290

PATIENT
  Age: 39 Year
  Sex: Female

DRUGS (6)
  1. GANIRELIX ACETATE INJECTION [Suspect]
     Indication: OVULATION INDUCTION
  2. CLOMIPHENE CITRATE [Concomitant]
     Indication: IN VITRO FERTILISATION
  3. PROGESTERONE [Suspect]
     Indication: IN VITRO FERTILISATION
     Route: 030
     Dates: start: 20101109, end: 20101123
  4. FOLLISTIM [Suspect]
     Indication: OVULATION INDUCTION
  5. CHORIONIC GONADOTROPIN [Suspect]
     Indication: OVULATION INDUCTION
  6. MENOPUR [Suspect]
     Indication: OVULATION INDUCTION

REACTIONS (1)
  - EOSINOPHILIC PNEUMONIA ACUTE [None]
